FAERS Safety Report 6010614-3 (Version None)
Quarter: 2008Q4

REPORT INFORMATION
  Report Type: 
  Country: None (occurrence: None)
  Receive Date: 20081218
  Receipt Date: 20080410
  Transmission Date: 20090506
  Serious: Yes (Other)
  Sender: FDA-Public Use
  Company Number: US-AMGEN-QUU271728

PATIENT
  Sex: Female

DRUGS (5)
  1. ENBREL [Suspect]
     Indication: RHEUMATOID ARTHRITIS
     Route: 058
     Dates: start: 20080208
  2. PLAQUENIL [Concomitant]
     Route: 048
     Dates: start: 20060101
  3. FOLIC ACID [Concomitant]
     Dates: start: 20070910
  4. ALEVE [Concomitant]
     Dates: start: 20070910
  5. DEPO-MEDROL [Concomitant]
     Dates: start: 20071210

REACTIONS (1)
  - GRAND MAL CONVULSION [None]
